FAERS Safety Report 4396098-X (Version None)
Quarter: 2004Q3

REPORT INFORMATION
  Report Type: 
  Country: None (occurrence: None)
  Receive Date: 20040709
  Receipt Date: 20040628
  Transmission Date: 20050211
  Serious: Yes (Death, Other)
  Sender: FDA-Public Use
  Company Number: KII-2002-0004469

PATIENT
  Sex: Male

DRUGS (10)
  1. OXYCONTIN [Suspect]
     Indication: DRUG USE FOR UNKNOWN INDICATION
     Dosage: 120 MG, BID
     Dates: end: 20020101
  2. NAPROSYN [Concomitant]
  3. FLEXERIL [Concomitant]
  4. MIDRIN (ISOMETHEPTENE, DICHLORALPHENAZONE) [Concomitant]
  5. AMITRIPTYLINE HCL [Concomitant]
  6. BACLOFEN [Concomitant]
  7. ATENOLOL [Concomitant]
  8. LASIX [Concomitant]
  9. K-DUR 10 [Concomitant]
  10. ACCUPRIL [Concomitant]

REACTIONS (4)
  - CARDIAC FAILURE CONGESTIVE [None]
  - DRUG ABUSER [None]
  - DRUG DEPENDENCE [None]
  - EUPHORIC MOOD [None]
